FAERS Safety Report 15329826 (Version 1)
Quarter: 2018Q3

REPORT INFORMATION
  Report Type: Spontaneous
  Country: US (occurrence: US)
  Receive Date: 20180829
  Receipt Date: 20180829
  Transmission Date: 20181010
  Serious: No
  Sender: FDA-Public Use
  Company Number: US-PFIZER INC-2018344014

PATIENT
  Age: 8 Year
  Sex: Female

DRUGS (1)
  1. GENOTROPIN [Suspect]
     Active Substance: SOMATROPIN
     Dosage: 0.7 MG, DAILY
     Dates: start: 20140310

REACTIONS (12)
  - Blood triglycerides increased [Unknown]
  - Mean cell haemoglobin decreased [Unknown]
  - Blood cholesterol increased [Unknown]
  - Non-high-density lipoprotein cholesterol increased [Unknown]
  - Blood thyroid stimulating hormone increased [Unknown]
  - Bone density increased [Unknown]
  - Insulin-like growth factor decreased [Unknown]
  - Low density lipoprotein increased [Unknown]
  - High density lipoprotein decreased [Unknown]
  - Alanine aminotransferase increased [Unknown]
  - Mean cell volume abnormal [Unknown]
  - Monocyte count decreased [Unknown]

NARRATIVE: CASE EVENT DATE: 20180615
